FAERS Safety Report 19290768 (Version 8)
Quarter: 2022Q2

REPORT INFORMATION
  Report Type: Report from Study
  Country: BR (occurrence: BR)
  Receive Date: 20210522
  Receipt Date: 20220519
  Transmission Date: 20220720
  Serious: Yes (Hospitalization, Other)
  Sender: FDA-Public Use
  Company Number: NVSC2021BR109592

PATIENT
  Age: 58 Year
  Sex: Male
  Weight: 94 kg

DRUGS (18)
  1. COSENTYX [Suspect]
     Active Substance: SECUKINUMAB
     Indication: Psoriatic arthropathy
     Dosage: 300 MG
     Route: 065
     Dates: start: 20201210
  2. COSENTYX [Suspect]
     Active Substance: SECUKINUMAB
     Indication: Ankylosing spondylitis
     Dosage: UNK, Q2W
     Route: 058
     Dates: start: 202012
  3. COSENTYX [Suspect]
     Active Substance: SECUKINUMAB
     Dosage: UNK
     Route: 065
     Dates: start: 20210405
  4. COSENTYX [Suspect]
     Active Substance: SECUKINUMAB
     Dosage: UNK
     Route: 065
     Dates: start: 20210505
  5. COSENTYX [Suspect]
     Active Substance: SECUKINUMAB
     Dosage: UNK  (APPLIED YESTERDAY)
     Route: 065
     Dates: end: 20220105
  6. COSENTYX [Suspect]
     Active Substance: SECUKINUMAB
     Dosage: 2 DOSAGE FORM, QMO
     Route: 058
     Dates: end: 202201
  7. ADALIMUMAB [Suspect]
     Active Substance: ADALIMUMAB
     Indication: Spondylitis
     Dosage: UNK, QW
     Route: 058
     Dates: start: 2017, end: 2020
  8. ADALIMUMAB [Suspect]
     Active Substance: ADALIMUMAB
     Indication: Psoriatic arthropathy
     Dosage: UNK, QW
     Route: 058
     Dates: end: 202011
  9. BISOPROLOL FUMARATE [Concomitant]
     Active Substance: BISOPROLOL FUMARATE
     Indication: Product used for unknown indication
     Dosage: 1 DF, QD (10 MG)
     Route: 048
  10. JARDIANCE [Concomitant]
     Active Substance: EMPAGLIFLOZIN
     Indication: Product used for unknown indication
     Dosage: 1 DF, QD (25 MG)
     Route: 048
  11. FOLIC ACID [Concomitant]
     Active Substance: FOLIC ACID
     Indication: Product used for unknown indication
     Dosage: 1 DF, QW
     Route: 048
  12. METHOTREXATE [Concomitant]
     Active Substance: METHOTREXATE
     Indication: Antiinflammatory therapy
     Dosage: 15-20 MG, QW (MANIPULATED)
     Route: 065
     Dates: start: 2015
  13. METHOTREXATE [Concomitant]
     Active Substance: METHOTREXATE
     Dosage: 15 MG, QD
     Route: 048
  14. METHOTREXATE [Concomitant]
     Active Substance: METHOTREXATE
     Dosage: 15 MG, QW
     Route: 048
  15. VITAMIN D [Concomitant]
     Active Substance: VITAMIN D NOS
     Indication: Product used for unknown indication
     Dosage: 1 DOSAGE FORM, QD ( DOSAGE: 5.0)
     Route: 065
  16. VITAMIN E [Concomitant]
     Active Substance: .ALPHA.-TOCOPHEROL
     Indication: Product used for unknown indication
     Dosage: 1 DOSAGE FORM, QD (STRENGTH: 400)
     Route: 048
  17. MENAQUINONE 6 [Concomitant]
     Active Substance: MENAQUINONE 6
     Indication: Product used for unknown indication
     Dosage: 1 DOSAGE FORM, QD
     Route: 048
  18. LINAGLIPTIN [Concomitant]
     Active Substance: LINAGLIPTIN
     Indication: Product used for unknown indication
     Dosage: UNK
     Route: 065

REACTIONS (22)
  - COVID-19 [Recovering/Resolving]
  - Follicular lymphoma [Recovered/Resolved]
  - Inguinal mass [Recovered/Resolved]
  - Psoriatic arthropathy [Unknown]
  - Ankylosing spondylitis [Unknown]
  - Herpes simplex [Unknown]
  - Skin lesion [Unknown]
  - Genital herpes [Not Recovered/Not Resolved]
  - Candida infection [Not Recovered/Not Resolved]
  - Skin injury [Unknown]
  - Oedema [Unknown]
  - Joint injury [Not Recovered/Not Resolved]
  - Pain [Not Recovered/Not Resolved]
  - Inflammation [Unknown]
  - Crying [Unknown]
  - Insomnia [Unknown]
  - Ill-defined disorder [Not Recovered/Not Resolved]
  - Arthralgia [Unknown]
  - Hypokinesia [Unknown]
  - Inappropriate schedule of product administration [Unknown]
  - Product prescribing error [Unknown]
  - Drug ineffective [Unknown]

NARRATIVE: CASE EVENT DATE: 20201101
